FAERS Safety Report 20246488 (Version 1)
Quarter: 2021Q4

REPORT INFORMATION
  Report Type: Spontaneous
  Country: CA (occurrence: None)
  Receive Date: 20211229
  Receipt Date: 20211229
  Transmission Date: 20220303
  Serious: Yes (Other)
  Sender: FDA-Public Use
  Company Number: CA-PFIZER INC-202101843876

PATIENT
  Age: 61 Year
  Sex: Female
  Weight: 100 kg

DRUGS (2)
  1. METHOTREXATE [Suspect]
     Active Substance: METHOTREXATE
     Indication: Product used for unknown indication
     Route: 065
     Dates: start: 2019
  2. FOLIC ACID [Concomitant]
     Active Substance: FOLIC ACID
     Route: 065

REACTIONS (5)
  - Rheumatic disorder [Unknown]
  - Fatigue [Unknown]
  - Abdominal pain [Unknown]
  - Constipation [Unknown]
  - Anaemia [Unknown]
